FAERS Safety Report 24061347 (Version 2)
Quarter: 2024Q3

REPORT INFORMATION
  Report Type: Spontaneous
  Country: US (occurrence: US)
  Receive Date: 20240708
  Receipt Date: 20240806
  Transmission Date: 20241016
  Serious: No
  Sender: SANOFI AVENTIS
  Company Number: US-SA-SAC20240703000649

PATIENT
  Sex: Female

DRUGS (43)
  1. DUPIXENT [Suspect]
     Active Substance: DUPILUMAB
     Indication: Asthma
     Dosage: 300 MG, QOW
     Route: 058
     Dates: start: 20210202
  2. DUPIXENT [Suspect]
     Active Substance: DUPILUMAB
     Indication: Psoriasis
     Dosage: 300 MG, Q4W
     Route: 058
  3. ACTEMRA [Concomitant]
     Active Substance: TOCILIZUMAB
  4. ACTEMRA [Concomitant]
     Active Substance: TOCILIZUMAB
  5. ADVAIR HFA [Concomitant]
     Active Substance: FLUTICASONE PROPIONATE\SALMETEROL XINAFOATE
  6. ADVAIR HFA [Concomitant]
     Active Substance: FLUTICASONE PROPIONATE\SALMETEROL XINAFOATE
  7. AIMOVIG [Concomitant]
     Active Substance: ERENUMAB-AOOE
     Dosage: 1 ML
  8. AJOVY [Concomitant]
     Active Substance: FREMANEZUMAB-VFRM
  9. AZATHIOPRINE [Concomitant]
     Active Substance: AZATHIOPRINE
     Dosage: 50MG
  10. AZATHIOPRINE [Concomitant]
     Active Substance: AZATHIOPRINE
  11. BELBUCA [Concomitant]
     Active Substance: BUPRENORPHINE HYDROCHLORIDE
     Dosage: 150MCG
  12. BELBUCA [Concomitant]
     Active Substance: BUPRENORPHINE HYDROCHLORIDE
  13. BOOSTRIX [Concomitant]
     Active Substance: TETANUS TOXOID, REDUCED DIPHTHERIA TOXOID AND ACELLULAR PERTUSSIS VACCINE, ADSORBED ANTIGENS
  14. BOOSTRIX [Concomitant]
     Active Substance: TETANUS TOXOID, REDUCED DIPHTHERIA TOXOID AND ACELLULAR PERTUSSIS VACCINE, ADSORBED ANTIGENS
  15. BOTOX [Concomitant]
     Active Substance: ONABOTULINUMTOXINA
  16. BOTOX [Concomitant]
     Active Substance: ONABOTULINUMTOXINA
  17. CLOBETASOL [Concomitant]
     Active Substance: CLOBETASOL
  18. CLOBETASOL [Concomitant]
     Active Substance: CLOBETASOL
  19. ELETRIPTAN [Concomitant]
     Active Substance: ELETRIPTAN
     Dosage: 20MG
  20. ELETRIPTAN [Concomitant]
     Active Substance: ELETRIPTAN
  21. EMGALITY [Concomitant]
     Active Substance: GALCANEZUMAB-GNLM
  22. EMGALITY [Concomitant]
     Active Substance: GALCANEZUMAB-GNLM
  23. ESTRADIOL [Concomitant]
     Active Substance: ESTRADIOL
     Dosage: UNK
  24. ESTRADIOL [Concomitant]
     Active Substance: ESTRADIOL
  25. FLUCONAZOLE [Concomitant]
     Active Substance: FLUCONAZOLE
     Dosage: 150MG
  26. HYDROCODONE BITARTRATE AND ACETAMINOPHEN [Concomitant]
     Active Substance: ACETAMINOPHEN\HYDROCODONE BITARTRATE
  27. KETOROLAC [Concomitant]
     Active Substance: KETOROLAC TROMETHAMINE
     Dosage: 10MG
  28. KETOROLAC [Concomitant]
     Active Substance: KETOROLAC TROMETHAMINE
  29. MALATHION [Concomitant]
     Active Substance: MALATHION
  30. MALATHION [Concomitant]
     Active Substance: MALATHION
  31. OTEZLA [Concomitant]
     Active Substance: APREMILAST
     Dosage: 8 DAY START PAK (55=1)
  32. OTEZLA [Concomitant]
     Active Substance: APREMILAST
     Dosage: 30 MG
  33. PREDNISONE [Concomitant]
     Active Substance: PREDNISONE
     Dosage: 10MG
  34. PREDNISONE [Concomitant]
     Active Substance: PREDNISONE
  35. PROMETHAZINE [Concomitant]
     Active Substance: PROMETHAZINE HYDROCHLORIDE
     Dosage: 25MG
  36. PROMETHAZINE [Concomitant]
     Active Substance: PROMETHAZINE HYDROCHLORIDE
  37. SHINGRIX [Concomitant]
     Active Substance: RECOMBINANT VARICELLA ZOSTER VIRUS (VZV) GLYCOPROTEIN E
  38. SHINGRIX [Concomitant]
     Active Substance: RECOMBINANT VARICELLA ZOSTER VIRUS (VZV) GLYCOPROTEIN E
  39. WIXELA INHUB [Concomitant]
     Active Substance: FLUTICASONE PROPIONATE\SALMETEROL XINAFOATE
  40. WIXELA INHUB [Concomitant]
     Active Substance: FLUTICASONE PROPIONATE\SALMETEROL XINAFOATE
  41. METHYLPHENIDATE HYDROCHLORIDE [Concomitant]
     Active Substance: METHYLPHENIDATE HYDROCHLORIDE
  42. METHYLPREDNISOLONE [Concomitant]
     Active Substance: METHYLPREDNISOLONE
  43. NURTEC ODT [Concomitant]
     Active Substance: RIMEGEPANT SULFATE
     Dosage: UNK

REACTIONS (8)
  - Impaired quality of life [Unknown]
  - Nausea [Recovering/Resolving]
  - Vomiting [Recovering/Resolving]
  - Pain [Recovering/Resolving]
  - Infection [Recovering/Resolving]
  - Loss of personal independence in daily activities [Recovering/Resolving]
  - Product use in unapproved indication [Unknown]
  - Incorrect dose administered [Unknown]
